FAERS Safety Report 13151680 (Version 1)
Quarter: 2017Q1

REPORT INFORMATION
  Report Type: Report from Study
  Country: None (occurrence: US)
  Receive Date: 20170125
  Receipt Date: 20170125
  Transmission Date: 20170428
  Serious: Yes (Hospitalization)
  Sender: FDA-Public Use
  Company Number: US-ABBVIE-16K-163-1801226-00

PATIENT
  Age: 58 Year
  Sex: Female
  Weight: 62.65 kg

DRUGS (1)
  1. HUMIRA [Suspect]
     Active Substance: ADALIMUMAB
     Indication: HIDRADENITIS
     Route: 058
     Dates: start: 201512

REACTIONS (5)
  - Weight increased [Not Recovered/Not Resolved]
  - Swelling [Recovering/Resolving]
  - Fall [Recovered/Resolved]
  - Loss of consciousness [Recovered/Resolved]
  - Pelvic fracture [Recovering/Resolving]

NARRATIVE: CASE EVENT DATE: 201611
